FAERS Safety Report 6449962-1 (Version None)
Quarter: 2009Q4

REPORT INFORMATION
  Report Type: 
  Country: None (occurrence: None)
  Receive Date: 20091123
  Receipt Date: 20091113
  Transmission Date: 20100525
  Serious: Yes (Hospitalization)
  Sender: FDA-Public Use
  Company Number: US-EISAI INC.-E7272-00037-CLI-US

PATIENT
  Sex: Male
  Weight: 99 kg

DRUGS (3)
  1. ONTAK [Suspect]
     Route: 065
     Dates: start: 20091026, end: 20091030
  2. RITUXIMAB [Suspect]
     Route: 065
     Dates: start: 20091026, end: 20091026
  3. LASIX [Concomitant]
     Route: 042
     Dates: start: 20091029

REACTIONS (3)
  - CAPILLARY LEAK SYNDROME [None]
  - CARDIAC VALVE DISEASE [None]
  - OEDEMA [None]
